FAERS Safety Report 7021608-3 (Version None)
Quarter: 2010Q3

REPORT INFORMATION
  Report Type: 
  Country: None (occurrence: None)
  Receive Date: 20100928
  Receipt Date: 20100921
  Transmission Date: 20110219
  Serious: Yes (Other)
  Sender: FDA-Public Use
  Company Number: 2010SP050845

PATIENT
  Age: 51 Year
  Sex: Female
  Weight: 71 kg

DRUGS (4)
  1. ORMIGREIN (ORMIGREIN 01755201/) [Suspect]
     Indication: MIGRAINE
     Dosage: PO
     Route: 048
     Dates: start: 20100901
  2. ARADOIS [Concomitant]
  3. FLUOXETINE [Concomitant]
  4. CITALOPRAM HYDROBROMIDE [Concomitant]

REACTIONS (2)
  - DRUG DEPENDENCE [None]
  - OVERDOSE [None]
